FAERS Safety Report 15130074 (Version 1)
Quarter: 2018Q3

REPORT INFORMATION
  Report Type: Report from Study
  Country: GB (occurrence: GB)
  Receive Date: 20180711
  Receipt Date: 20180711
  Transmission Date: 20181010
  Serious: Yes (Hospitalization)
  Sender: FDA-Public Use
  Company Number: PHHY2018GB036710

PATIENT
  Sex: Female

DRUGS (1)
  1. COSENTYX [Suspect]
     Active Substance: SECUKINUMAB
     Indication: PSORIASIS
     Dosage: 300 MG, QMO
     Route: 058
     Dates: start: 20170719

REACTIONS (6)
  - Pain [Unknown]
  - Skin haemorrhage [Unknown]
  - Movement disorder [Unknown]
  - Mood swings [Unknown]
  - Skin fissures [Unknown]
  - Gait disturbance [Unknown]
